FAERS Safety Report 19796268 (Version 1)
Quarter: 2021Q3

REPORT INFORMATION
  Report Type: Other
  Country: US (occurrence: US)
  Receive Date: 20210907
  Receipt Date: 20210907
  Transmission Date: 20211014
  Serious: Yes (Other)
  Sender: FDA-Public Use
  Company Number: US-ROCHE-2863301

PATIENT
  Age: 51 Year
  Sex: Female
  Weight: 120.31 kg

DRUGS (4)
  1. GABAPENTIN. [Concomitant]
     Active Substance: GABAPENTIN
     Route: 048
     Dates: start: 2017
  2. OCREVUS [Suspect]
     Active Substance: OCRELIZUMAB
     Indication: RELAPSING MULTIPLE SCLEROSIS
     Dosage: NEXT DOSE ON: 30/SEP/2020, /OCT/2020, /MAR/2021, 17/MAR/2021
     Route: 042
     Dates: start: 20200915
  3. IBUPROFEN. [Concomitant]
     Active Substance: IBUPROFEN
  4. LOSARTIN [Concomitant]
     Active Substance: LOSARTAN

REACTIONS (8)
  - Pain [Unknown]
  - Dysstasia [Unknown]
  - Mobility decreased [Unknown]
  - COVID-19 [Recovered/Resolved]
  - Multiple sclerosis [Not Recovered/Not Resolved]
  - Arthralgia [Unknown]
  - Gait disturbance [Unknown]
  - Walking aid user [Unknown]

NARRATIVE: CASE EVENT DATE: 20210117
